FAERS Safety Report 25610869 (Version 1)
Quarter: 2025Q3

REPORT INFORMATION
  Report Type: Spontaneous
  Country: US (occurrence: None)
  Receive Date: 20250725
  Receipt Date: 20250725
  Transmission Date: 20251020
  Serious: Yes (Other)
  Sender: FDA-CTU
  Company Number: None

PATIENT
  Age: 70 Year
  Sex: Female
  Weight: 75 kg

DRUGS (6)
  1. DOXORUBICIN HYDROCHLORIDE [Suspect]
     Active Substance: DOXORUBICIN HYDROCHLORIDE
     Route: 042
     Dates: start: 20250623, end: 20250623
  2. BEVACIZUMAB [Concomitant]
     Active Substance: BEVACIZUMAB
     Dates: start: 20250623, end: 20250623
  3. EMEND [Concomitant]
     Active Substance: APREPITANT
     Dates: start: 20250623, end: 20250623
  4. PALONESETRON [Concomitant]
     Dates: start: 20250623, end: 20250623
  5. DEXTROSE [Concomitant]
     Active Substance: DEXTROSE MONOHYDRATE
     Dates: start: 20250623, end: 20250623
  6. SODIUM CHLORIDE [Concomitant]
     Active Substance: SODIUM CHLORIDE
     Dates: start: 20250623, end: 20250623

REACTIONS (8)
  - Nausea [None]
  - Erythema [None]
  - Unresponsive to stimuli [None]
  - Syncope [None]
  - Tachycardia [None]
  - Respiratory rate decreased [None]
  - Hypopnoea [None]
  - Post procedural complication [None]

NARRATIVE: CASE EVENT DATE: 20250623
